FAERS Safety Report 7478116-5 (Version None)
Quarter: 2011Q2

REPORT INFORMATION
  Report Type: 
  Country: None (occurrence: None)
  Receive Date: 20110513
  Receipt Date: 20110504
  Transmission Date: 20111010
  Serious: Yes (Hospitalization)
  Sender: FDA-Public Use
  Company Number: US-ASTRAZENECA-2010SE04121

PATIENT
  Age: 61 Year
  Sex: Male
  Weight: 102.1 kg

DRUGS (3)
  1. LAMOTRIGINE [Concomitant]
     Indication: CARDIAC DISORDER
  2. TROPRANOLOL [Concomitant]
     Indication: CARDIAC DISORDER
  3. SEROQUEL [Suspect]
     Route: 048

REACTIONS (5)
  - DEPRESSION [None]
  - DRUG DOSE OMISSION [None]
  - HOSPITALISATION [None]
  - ULCER HAEMORRHAGE [None]
  - CONVULSION [None]
